FAERS Safety Report 13738820 (Version 2)
Quarter: 2017Q3

REPORT INFORMATION
  Report Type: Spontaneous
  Country: BE (occurrence: BE)
  Receive Date: 20170710
  Receipt Date: 20170828
  Transmission Date: 20171127
  Serious: Yes (Life-Threatening, Other)
  Sender: FDA-Public Use
  Company Number: BE-PFIZER INC-2017294871

PATIENT
  Age: 52 Year
  Sex: Female

DRUGS (1)
  1. SUTENT [Suspect]
     Active Substance: SUNITINIB MALATE
     Indication: METASTATIC RENAL CELL CARCINOMA
     Dosage: 50 MG,CYCLIC ( 1X/DAY, 4 WEEKS ON, 2 WEEKS OFF)
     Route: 048
     Dates: start: 20170614

REACTIONS (6)
  - Mouth ulceration [Unknown]
  - Decreased appetite [Recovered/Resolved]
  - Anal ulcer [Unknown]
  - Migraine [Unknown]
  - Nausea [Recovered/Resolved]
  - Night sweats [Unknown]

NARRATIVE: CASE EVENT DATE: 20170616
